FAERS Safety Report 7509952-4 (Version None)
Quarter: 2011Q2

REPORT INFORMATION
  Report Type: 
  Country: None (occurrence: None)
  Receive Date: 20110527
  Receipt Date: 20110516
  Transmission Date: 20111010
  Serious: Yes (Death, Life-Threatening, Hospitalization, Other)
  Sender: FDA-Public Use
  Company Number: DE-GENZYME-FLUD-1000301

PATIENT
  Age: 12 Year
  Sex: Male

DRUGS (9)
  1. FLUCONAZOLE [Concomitant]
     Indication: ANTIFUNGAL PROPHYLAXIS
     Dosage: 3 MG/KG, UNK
     Route: 065
  2. IDARUBICIN HCL [Suspect]
     Indication: ACUTE LYMPHOCYTIC LEUKAEMIA
     Dosage: 12 MG/M2, QD ON DAYS 2-4
     Route: 042
  3. ANTIEMETICS AND ANTINAUSEANTS [Concomitant]
     Indication: PRODUCT USED FOR UNKNOWN INDICATION
     Dosage: UNK
     Route: 065
  4. ANTINEOPLASTIC AGENTS [Concomitant]
     Indication: ACUTE LYMPHOCYTIC LEUKAEMIA
     Dosage: UNK
     Route: 065
  5. CORTICOSTEROIDS [Concomitant]
     Indication: PRODUCT USED FOR UNKNOWN INDICATION
     Dosage: UNK
     Route: 065
  6. TRIMETHOPRIM + SULFAMETHOXAZOLE [Concomitant]
     Indication: ANTIBIOTIC PROPHYLAXIS
     Dosage: 5 MG/KG, UNK
     Route: 065
  7. FLUDARA [Suspect]
     Indication: ACUTE LYMPHOCYTIC LEUKAEMIA
     Dosage: 30 MG/M2, QD ON DAYS 1-4
     Route: 042
  8. GRANULOCYTE COLONY STIMULATING FACTOR [Suspect]
     Indication: ACUTE LYMPHOCYTIC LEUKAEMIA
     Dosage: 400 MG/M2, QD FROM DAY 0 TO THE DAY OF ABSOLUTE NEUTROPHIL COUNT OF }1.0X10E9/L
     Route: 042
  9. CYTARABINE [Suspect]
     Indication: ACUTE LYMPHOCYTIC LEUKAEMIA
     Dosage: 2000 MG/M2, QD ON DAYS 1-4
     Route: 042

REACTIONS (3)
  - INFECTION [None]
  - MUCOSAL INFLAMMATION [None]
  - FEBRILE NEUTROPENIA [None]
